FAERS Safety Report 16320410 (Version 1)
Quarter: 2019Q2

REPORT INFORMATION
  Report Type: Spontaneous
  Country: FR (occurrence: FR)
  Receive Date: 20190516
  Receipt Date: 20190516
  Transmission Date: 20190711
  Serious: Yes (Life-Threatening)
  Sender: FDA-Public Use
  Company Number: FR-MYLANLABS-2019M1045622

PATIENT
  Age: 43 Year
  Sex: Male

DRUGS (5)
  1. TRAMADOL. [Suspect]
     Active Substance: TRAMADOL
     Indication: PAIN
     Dosage: 3000 MILLIGRAM, QD
     Route: 048
     Dates: start: 201805
  2. TRAMADOL. [Suspect]
     Active Substance: TRAMADOL
     Dosage: 2 DOSAGE FORM, TOTAL
     Route: 048
     Dates: start: 20180620, end: 20180620
  3. ALCOOL [Suspect]
     Active Substance: ALCOHOL
     Indication: PRODUCT USED FOR UNKNOWN INDICATION
     Dosage: UNK
     Route: 048
  4. BACLOFENE [Suspect]
     Active Substance: BACLOFEN
     Indication: ALCOHOL USE DISORDER
     Dosage: 6 DOSAGE FORM, TOTAL
     Route: 048
     Dates: start: 20180620, end: 20180620
  5. BACLOFENE [Suspect]
     Active Substance: BACLOFEN
     Dosage: UNK
     Route: 048

REACTIONS (2)
  - Toxicity to various agents [Recovered/Resolved]
  - Drug abuse [Recovering/Resolving]

NARRATIVE: CASE EVENT DATE: 20180620
